FAERS Safety Report 13620703 (Version 1)
Quarter: 2017Q2

REPORT INFORMATION
  Report Type: Spontaneous
  Country: US (occurrence: US)
  Receive Date: 20170607
  Receipt Date: 20170607
  Transmission Date: 20170830
  Serious: Yes (Hospitalization)
  Sender: FDA-Public Use
  Company Number: None

PATIENT
  Age: 10 Year
  Sex: Female
  Weight: 60 kg

DRUGS (1)
  1. AZITHYROMYCIN, 500 MG [Suspect]
     Active Substance: AZITHROMYCIN
     Indication: PNEUMONIA
     Route: 048
     Dates: start: 20160909, end: 20160909

REACTIONS (9)
  - Headache [None]
  - Vomiting [None]
  - Hypotension [None]
  - Loss of consciousness [None]
  - Hypopnoea [None]
  - Ventricular fibrillation [None]
  - Electrocardiogram QT prolonged [None]
  - Gait disturbance [None]
  - Fall [None]

NARRATIVE: CASE EVENT DATE: 20160909
